FAERS Safety Report 9379959 (Version 1)
Quarter: 2013Q3

REPORT INFORMATION
  Report Type: Spontaneous
  Country: US (occurrence: US)
  Receive Date: 20130702
  Receipt Date: 20130702
  Transmission Date: 20140515
  Serious: Yes (Hospitalization)
  Sender: FDA-Public Use
  Company Number: US-PFIZER INC-2013187484

PATIENT
  Age: 29 Year
  Sex: Male

DRUGS (2)
  1. DEXTROMETHORPHAN HBR [Suspect]
     Dosage: 300-500 MG
  2. DEXTROMETHORPHAN HBR [Suspect]
     Dosage: DAILY, 1-2 WEEKS

REACTIONS (7)
  - Drug abuse [Unknown]
  - Agitation [Recovered/Resolved]
  - Hallucination, auditory [Recovered/Resolved]
  - Social avoidant behaviour [Recovered/Resolved]
  - Speech disorder [Recovered/Resolved]
  - Aggression [Recovered/Resolved]
  - Delusion [Recovered/Resolved]
